FAERS Safety Report 5635685-5 (Version None)
Quarter: 2008Q1

REPORT INFORMATION
  Report Type: 
  Country: None (occurrence: None)
  Receive Date: 20080220
  Receipt Date: 20080206
  Transmission Date: 20080703
  Serious: Yes (Hospitalization)
  Sender: FDA-Public Use
  Company Number: DSJ-2008-00909

PATIENT
  Age: 62 Year
  Sex: Female
  Weight: 56 kg

DRUGS (6)
  1. OLMESARTAN MEDOXOMIL [Suspect]
     Indication: ESSENTIAL HYPERTENSION
     Dosage: 20 MG (20 MG,1 IN 1 D), PER ORAL
     Route: 048
     Dates: start: 20060914, end: 20071108
  2. OMEPRAZOLE (OMEPRAZOLE) (TABLET) (OMEPRAZOLE) [Concomitant]
  3. MUCOSTA (REBAMIPIDE) (REBAMIPIDE) [Concomitant]
  4. DEPAS (ETIZOLAM) (TABLET) (ETIZOLAM) [Suspect]
  5. AMLODIPINE [Suspect]
     Dosage: 2.5 MG (2.5 MG,1 IN 1 D), PER ORAL
     Route: 048
     Dates: end: 20060913
  6. TENORMIN [Suspect]
     Dosage: 25 MG (25 MG, 1 IN 1 D ) PER ORAL
     Route: 048

REACTIONS (3)
  - DIZZINESS [None]
  - FALL [None]
  - FEMUR FRACTURE [None]
